FAERS Safety Report 5095473-8 (Version None)
Quarter: 2006Q3

REPORT INFORMATION
  Report Type: 
  Country: None (occurrence: None)
  Receive Date: 20060901
  Receipt Date: 20060901
  Transmission Date: 20061208
  Serious: Yes (Other)
  Sender: FDA-Public Use
  Company Number: None

PATIENT
  Age: 53 Year
  Sex: Male

DRUGS (1)
  1. NEXIUM [Suspect]
     Indication: GASTROOESOPHAGEAL REFLUX DISEASE
     Dosage: 1/DAY MOUTH
     Route: 048
     Dates: end: 20020701

REACTIONS (2)
  - RECTAL HAEMORRHAGE [None]
  - URINARY BLADDER HAEMORRHAGE [None]
